FAERS Safety Report 24420041 (Version 1)
Quarter: 2024Q4

REPORT INFORMATION
  Report Type: Spontaneous
  Country: AU (occurrence: AU)
  Receive Date: 20241010
  Receipt Date: 20241010
  Transmission Date: 20250115
  Serious: Yes (Other)
  Sender: MERCK
  Company Number: AU-009507513-2410AUS001769

PATIENT
  Sex: Female

DRUGS (1)
  1. KEYTRUDA [Suspect]
     Active Substance: PEMBROLIZUMAB
     Indication: Cervix cancer metastatic
     Dosage: STRENGTH: 100 MG/4ML

REACTIONS (2)
  - Immunotoxicity [Unknown]
  - Therapy cessation [Unknown]
